FAERS Safety Report 8586077-0 (Version None)
Quarter: 2012Q3

REPORT INFORMATION
  Report Type: 
  Country: None (occurrence: None)
  Receive Date: 20120810
  Receipt Date: 20120802
  Transmission Date: 20120928
  Serious: Yes (Hospitalization)
  Sender: FDA-Public Use
  Company Number: CA-ELI_LILLY_AND_COMPANY-CA201205009301

PATIENT
  Age: 88 Year
  Sex: Male

DRUGS (5)
  1. PRESERVISION LUTEIN [Concomitant]
  2. CALTRATE PLUS [Concomitant]
  3. VITAMIN D [Concomitant]
     Dosage: UNK
  4. PHENOBARBITAL TAB [Concomitant]
     Dosage: 30 MG, UNK
  5. FORTEO [Suspect]
     Indication: OSTEOPOROSIS
     Dosage: 20 UG, QD
     Route: 058
     Dates: start: 20120501, end: 20120529

REACTIONS (3)
  - OEDEMA PERIPHERAL [None]
  - GAIT DISTURBANCE [None]
  - JOINT SWELLING [None]
